FAERS Safety Report 15050867 (Version 1)
Quarter: 2018Q2

REPORT INFORMATION
  Report Type: Spontaneous
  Country: US (occurrence: US)
  Receive Date: 20180622
  Receipt Date: 20180622
  Transmission Date: 20180711
  Serious: No
  Sender: FDA-Public Use
  Company Number: US-ASTELLAS-2018US005841

PATIENT
  Sex: Male

DRUGS (12)
  1. VESICARE [Suspect]
     Active Substance: SOLIFENACIN SUCCINATE
     Indication: BLADDER DISORDER
  2. VESICARE [Suspect]
     Active Substance: SOLIFENACIN SUCCINATE
     Indication: BLADDER DISORDER
  3. VESICARE [Suspect]
     Active Substance: SOLIFENACIN SUCCINATE
     Indication: PARAPLEGIA
  4. VESICARE [Suspect]
     Active Substance: SOLIFENACIN SUCCINATE
     Indication: TUBULOINTERSTITIAL NEPHRITIS
  5. VESICARE [Suspect]
     Active Substance: SOLIFENACIN SUCCINATE
     Indication: AUTONOMIC DYSREFLEXIA
  6. VESICARE [Suspect]
     Active Substance: SOLIFENACIN SUCCINATE
     Indication: PRODUCT USED FOR UNKNOWN INDICATION
  7. VESICARE [Suspect]
     Active Substance: SOLIFENACIN SUCCINATE
     Indication: BLADDER DISORDER
  8. VESICARE [Suspect]
     Active Substance: SOLIFENACIN SUCCINATE
     Indication: URINARY INCONTINENCE
     Route: 048
  9. VESICARE [Suspect]
     Active Substance: SOLIFENACIN SUCCINATE
     Indication: URINARY RETENTION
  10. VESICARE [Suspect]
     Active Substance: SOLIFENACIN SUCCINATE
     Indication: INCONTINENCE
  11. VESICARE [Suspect]
     Active Substance: SOLIFENACIN SUCCINATE
     Indication: URINARY TRACT INFECTION
  12. VESICARE [Suspect]
     Active Substance: SOLIFENACIN SUCCINATE
     Indication: HAEMATURIA

REACTIONS (1)
  - Off label use [Unknown]
